FAERS Safety Report 19224789 (Version 1)
Quarter: 2021Q2

REPORT INFORMATION
  Report Type: Spontaneous
  Country: US (occurrence: US)
  Receive Date: 20210505
  Receipt Date: 20210505
  Transmission Date: 20210717
  Serious: No
  Sender: FDA-Public Use
  Company Number: US-ROCHE-2743948

PATIENT
  Sex: Male

DRUGS (1)
  1. ESBRIET [Suspect]
     Active Substance: PIRFENIDONE
     Indication: PULMONARY FIBROSIS
     Dosage: 1 TAB BY MOUTH TWICE A DAY WITH FOOD
     Route: 048
     Dates: start: 20190717

REACTIONS (3)
  - Off label use [Unknown]
  - Intentional product misuse [Unknown]
  - No adverse event [Unknown]
